FAERS Safety Report 12991641 (Version 2)
Quarter: 2016Q4

REPORT INFORMATION
  Report Type: Spontaneous
  Country: BR (occurrence: BR)
  Receive Date: 20161201
  Receipt Date: 20161226
  Transmission Date: 20170207
  Serious: Yes (Other)
  Sender: FDA-Public Use
  Company Number: PHHY2016BR163552

PATIENT
  Sex: Female

DRUGS (2)
  1. EXFORGE HCT [Suspect]
     Active Substance: AMLODIPINE BESYLATE\HYDROCHLOROTHIAZIDE\VALSARTAN
     Indication: HYPERTENSION
     Dosage: 1 DF, QD
     Route: 048
  2. DIOVAN AMLO FIX [Suspect]
     Active Substance: AMLODIPINE\VALSARTAN
     Indication: HYPERTENSION
     Dosage: 1 DF, QD
     Route: 048

REACTIONS (10)
  - Blood pressure inadequately controlled [Unknown]
  - Oropharyngeal pain [Not Recovered/Not Resolved]
  - Urticaria [Recovering/Resolving]
  - Dry skin [Recovering/Resolving]
  - Vocal cord disorder [Recovered/Resolved]
  - Dry mouth [Recovering/Resolving]
  - Asthma [Recovered/Resolved]
  - Nail discolouration [Recovering/Resolving]
  - Mechanical urticaria [Recovering/Resolving]
  - Gastrointestinal disorder [Recovering/Resolving]
